FAERS Safety Report 5688115-1 (Version None)
Quarter: 2008Q1

REPORT INFORMATION
  Report Type: 
  Country: None (occurrence: None)
  Receive Date: 20080327
  Receipt Date: 20080317
  Transmission Date: 20080703
  Serious: No
  Sender: FDA-Public Use
  Company Number: TPA2008A00343

PATIENT
  Age: 59 Year
  Sex: Male
  Weight: 136.0791 kg

DRUGS (2)
  1. ACTOS [Suspect]
     Indication: TYPE 2 DIABETES MELLITUS
     Dosage: 22.5 MG, 1 IN 1 D, PER ORAL
     Route: 048
     Dates: start: 20030101
  2. JANUVIA (ANTI-DIABETICS) [Concomitant]

REACTIONS (2)
  - FLUID RETENTION [None]
  - WEIGHT INCREASED [None]
